FAERS Safety Report 4951811-5 (Version None)
Quarter: 2006Q1

REPORT INFORMATION
  Report Type: 
  Country: None (occurrence: None)
  Receive Date: 20060323
  Receipt Date: 20060119
  Transmission Date: 20060701
  Serious: Yes (Other)
  Sender: FDA-Public Use
  Company Number: US-ROCHE-433027

PATIENT
  Age: 28 Year
  Sex: Male

DRUGS (3)
  1. KLONOPIN [Suspect]
     Indication: ANXIETY
     Route: 048
     Dates: start: 20060110, end: 20060110
  2. ZOLOFT [Concomitant]
     Indication: POST-TRAUMATIC STRESS DISORDER
     Route: 048
     Dates: start: 20030615, end: 20060107
  3. OMEPRAZOLE [Concomitant]
     Route: 048
     Dates: start: 20030615

REACTIONS (1)
  - CONVULSION [None]
